FAERS Safety Report 24153443 (Version 1)
Quarter: 2024Q3

REPORT INFORMATION
  Report Type: Spontaneous
  Country: US (occurrence: None)
  Receive Date: 20240730
  Receipt Date: 20240730
  Transmission Date: 20241016
  Serious: No
  Sender: Public
  Company Number: None

PATIENT
  Age: 61 Year
  Sex: Male
  Weight: 63 kg

DRUGS (5)
  1. BENZONATATE [Suspect]
     Active Substance: BENZONATATE
     Indication: Cough
     Dosage: 1 CAPSULE 3 TIMES A DAY ORAL?
     Route: 048
     Dates: start: 20240726, end: 20240729
  2. ATORVASTATIN [Concomitant]
     Active Substance: ATORVASTATIN
  3. SYNTHROID [Concomitant]
     Active Substance: LEVOTHYROXINE SODIUM
  4. LATANOPROST [Concomitant]
     Active Substance: LATANOPROST
  5. DORZOLAMIDE [Concomitant]
     Active Substance: DORZOLAMIDE

REACTIONS (3)
  - Rash [None]
  - Swelling [None]
  - Therapy interrupted [None]

NARRATIVE: CASE EVENT DATE: 20240729
